FAERS Safety Report 21136117 (Version 3)
Quarter: 2022Q3

REPORT INFORMATION
  Report Type: Report from Study
  Country: BY (occurrence: BY)
  Receive Date: 20220727
  Receipt Date: 20220915
  Transmission Date: 20221026
  Serious: Yes (Life-Threatening, Hospitalization, Other)
  Sender: FDA-Public Use
  Company Number: BY-MYLANLABS-2022M1079118

PATIENT
  Age: 72 Year
  Sex: Male
  Weight: 70 kg

DRUGS (5)
  1. PRETOMANID [Suspect]
     Active Substance: PRETOMANID
     Indication: Product used for unknown indication
     Dosage: 200 MILLIGRAM, QD (200 MG OD PO)
     Route: 048
     Dates: start: 20220317, end: 20220901
  2. MOXIFLOXACIN [Suspect]
     Active Substance: MOXIFLOXACIN
     Indication: Product used for unknown indication
     Dosage: 400 MILLIGRAM, QD (400 MG OD PO)
     Route: 048
     Dates: start: 20220317, end: 20220901
  3. LINEZOLID [Suspect]
     Active Substance: LINEZOLID
     Indication: Product used for unknown indication
     Dosage: 600 MILLIGRAM, QD (600 MG OD PO)
     Route: 048
     Dates: start: 20220317, end: 20220901
  4. BEDAQUILINE [Suspect]
     Active Substance: BEDAQUILINE
     Indication: Product used for unknown indication
     Dosage: 200 MILLIGRAM, 3XW (200 THRICE WEEKLY PO)
     Route: 048
     Dates: start: 20220317, end: 20220901
  5. BEDAQUILINE [Suspect]
     Active Substance: BEDAQUILINE
     Dosage: 400 MILLIGRAM, QD (400MG OD FOR 2 WKS)
     Route: 048
     Dates: start: 20220317

REACTIONS (2)
  - Lung neoplasm malignant [Recovered/Resolved with Sequelae]
  - Pulmonary tuberculoma [Recovering/Resolving]

NARRATIVE: CASE EVENT DATE: 20220712
